FAERS Safety Report 11848029 (Version 3)
Quarter: 2016Q1

REPORT INFORMATION
  Report Type: Report from Study
  Country: JP (occurrence: JP)
  Receive Date: 20151217
  Receipt Date: 20160301
  Transmission Date: 20160526
  Serious: Yes (Hospitalization)
  Sender: FDA-Public Use
  Company Number: PHJP2015JP022594

PATIENT
  Age: 46 Year
  Sex: Female
  Weight: 59 kg

DRUGS (18)
  1. SELBEX [Concomitant]
     Active Substance: TEPRENONE
     Indication: PROPHYLAXIS
     Dosage: 100 MG, UNK
     Route: 048
     Dates: end: 20130703
  2. LYRICA [Concomitant]
     Active Substance: PREGABALIN
     Dosage: 225 MG, UNK
     Route: 048
     Dates: start: 20140806
  3. SHAKUYAKUKANZOTO [Concomitant]
     Active Substance: HERBALS
     Indication: MULTIPLE SCLEROSIS
     Dosage: 2.5 G, UNK
     Route: 048
  4. LOXONIN [Concomitant]
     Active Substance: LOXOPROFEN SODIUM
     Indication: MULTIPLE SCLEROSIS
     Dosage: 180 MG, UNK
     Route: 048
     Dates: start: 20130410
  5. TAKEPRON [Concomitant]
     Active Substance: LANSOPRAZOLE
     Indication: PROPHYLAXIS
     Dosage: 30 MG, UNK
     Route: 048
     Dates: end: 20130703
  6. GILENYA [Suspect]
     Active Substance: FINGOLIMOD HYDROCHLORIDE
     Indication: MULTIPLE SCLEROSIS
     Dosage: 0.5 MG, QD
     Route: 048
     Dates: start: 20130318
  7. PREDONINE [Concomitant]
     Active Substance: PREDNISOLONE\PREDNISOLONE ACETATE\PREDNISOLONE SODIUM SUCCINATE
     Indication: MULTIPLE SCLEROSIS
     Dosage: 20 MG, UNK
     Route: 048
     Dates: start: 20130318, end: 20130327
  8. PREDONINE [Concomitant]
     Active Substance: PREDNISOLONE\PREDNISOLONE ACETATE\PREDNISOLONE SODIUM SUCCINATE
     Dosage: 15 MG, UNK
     Route: 048
     Dates: start: 20130328, end: 20130508
  9. PREDONINE [Concomitant]
     Active Substance: PREDNISOLONE\PREDNISOLONE ACETATE\PREDNISOLONE SODIUM SUCCINATE
     Dosage: 10 MG, UNK
     Route: 048
     Dates: start: 20130509, end: 20130605
  10. LYRICA [Concomitant]
     Active Substance: PREGABALIN
     Indication: MULTIPLE SCLEROSIS
     Dosage: 225 MG, UNK
     Route: 048
     Dates: end: 20130703
  11. ATELEC [Concomitant]
     Active Substance: CILNIDIPINE
     Indication: HYPERTENSION
     Dosage: 10 MG, UNK
     Route: 048
  12. ZYPREXA [Concomitant]
     Active Substance: OLANZAPINE
     Indication: DEPRESSION
     Dosage: 5 MG, UNK
     Route: 048
  13. MYSLEE [Concomitant]
     Active Substance: ZOLPIDEM TARTRATE
     Indication: INSOMNIA
     Dosage: 5 MG, UNK
     Route: 048
     Dates: start: 20130401, end: 20140107
  14. TEGRETOL [Concomitant]
     Active Substance: CARBAMAZEPINE
     Indication: MULTIPLE SCLEROSIS
     Dosage: 200 MG, UNK
     Route: 048
     Dates: start: 20140806, end: 20141021
  15. PREDONINE [Concomitant]
     Active Substance: PREDNISOLONE\PREDNISOLONE ACETATE\PREDNISOLONE SODIUM SUCCINATE
     Dosage: 5 MG, UNK
     Route: 048
     Dates: start: 20130606, end: 20130703
  16. AVAPRO [Concomitant]
     Active Substance: IRBESARTAN
     Indication: HYPERTENSION
     Dosage: 100 MG, UNK
     Route: 048
  17. LENDEM [Concomitant]
     Indication: INSOMNIA
     Dosage: 0.25 MG, UNK
     Route: 048
     Dates: end: 20130331
  18. ROHYPNOL [Concomitant]
     Active Substance: FLUNITRAZEPAM
     Indication: INSOMNIA
     Dosage: 2 MG, UNK
     Route: 048
     Dates: end: 20130703

REACTIONS (5)
  - Gamma-glutamyltransferase increased [Not Recovered/Not Resolved]
  - Multiple sclerosis relapse [Recovered/Resolved]
  - Muscular weakness [Unknown]
  - Endometrial hyperplasia [Recovered/Resolved]
  - Metrorrhagia [Unknown]

NARRATIVE: CASE EVENT DATE: 201305
